FAERS Safety Report 7098514-1 (Version None)
Quarter: 2010Q4

REPORT INFORMATION
  Report Type: 
  Country: None (occurrence: None)
  Receive Date: 20101112
  Receipt Date: 20100505
  Transmission Date: 20110411
  Serious: No
  Sender: FDA-Public Use
  Company Number: US-KINGPHARMUSA00001-K201000560

PATIENT
  Sex: Female
  Weight: 37.188 kg

DRUGS (3)
  1. BICILLIN L-A [Suspect]
     Indication: AUTOIMMUNE DISORDER
     Dosage: 1,200,000 UNITS, THREE TIMES
     Route: 030
     Dates: start: 20100202, end: 20100317
  2. ZITHROMAX [Concomitant]
     Indication: AUTOIMMUNE DISORDER
     Dosage: UNK
     Route: 048
  3. AUGMENTIN '125' [Concomitant]
     Indication: AUTOIMMUNE DISORDER
     Dosage: UNK
     Route: 048

REACTIONS (1)
  - SWOLLEN TONGUE [None]
